FAERS Safety Report 14636539 (Version 1)
Quarter: 2018Q1

REPORT INFORMATION
  Report Type: Spontaneous
  Country: US (occurrence: US)
  Receive Date: 20180313
  Receipt Date: 20180313
  Transmission Date: 20180509
  Serious: No
  Sender: FDA-Public Use
  Company Number: None

PATIENT
  Age: 39 Year
  Sex: Female
  Weight: 52.65 kg

DRUGS (3)
  1. PLANT BASED PROTEIN SHAKE WITH VITAMINS [Concomitant]
  2. CIPROFLAXIN [Suspect]
     Active Substance: CIPROFLOXACIN
     Indication: URINARY TRACT INFECTION
     Dosage: ?          QUANTITY:1 TABLET(S);?
     Route: 048
     Dates: start: 20180306, end: 20180309
  3. WHOLE FOODS [Concomitant]

REACTIONS (4)
  - Arthralgia [None]
  - Joint swelling [None]
  - Product use complaint [None]
  - Quality of life decreased [None]

NARRATIVE: CASE EVENT DATE: 20180309
